FAERS Safety Report 9140971 (Version 1)
Quarter: 2013Q1

REPORT INFORMATION
  Report Type: Report from Study
  Country: TR (occurrence: TR)
  Receive Date: 20130305
  Receipt Date: 20130305
  Transmission Date: 20140127
  Serious: Yes (Other)
  Sender: FDA-Public Use
  Company Number: TR-VERTEX PHARMACEUTICALS INC.-2013-003053

PATIENT
  Sex: Female

DRUGS (5)
  1. VX-950 (TELAPREVIR) [Suspect]
     Indication: HEPATITIS C
     Dosage: TABLET UNK
  2. VX-950 (TELAPREVIR) [Suspect]
     Dosage: UNK
  3. RIBAVIRINE [Suspect]
     Indication: CHRONIC HEPATITIS C
     Dosage: UNK
  4. PEGINTERFERON ALFA-2A [Suspect]
     Indication: CHRONIC HEPATITIS C
     Dosage: 90 ?G, UNK
  5. PEGINTERFERON ALFA-2A [Suspect]
     Dosage: UNK

REACTIONS (1)
  - Pancytopenia [Unknown]
